FAERS Safety Report 4932937-9 (Version None)
Quarter: 2006Q1

REPORT INFORMATION
  Report Type: 
  Country: None (occurrence: None)
  Receive Date: 20060301
  Receipt Date: 20060301
  Transmission Date: 20060701
  Serious: Yes (Other)
  Sender: FDA-Public Use
  Company Number: None

PATIENT
  Sex: Male

DRUGS (2)
  1. OXALIPLATIN [Suspect]
     Indication: COLON CANCER
     Dosage: 260 MG X1 IV
     Route: 042
     Dates: start: 20051201, end: 20051201
  2. AVASTIN [Suspect]
     Dosage: 625 MG X1 IV
     Route: 042

REACTIONS (4)
  - EYE DISORDER [None]
  - INFUSION RELATED REACTION [None]
  - MOVEMENT DISORDER [None]
  - PARAESTHESIA [None]
